FAERS Safety Report 7671261-0 (Version None)
Quarter: 2011Q3

REPORT INFORMATION
  Report Type: 
  Country: None (occurrence: None)
  Receive Date: 20110808
  Receipt Date: 20110808
  Transmission Date: 20111222
  Serious: Yes (Other)
  Sender: FDA-Public Use
  Company Number: None

PATIENT
  Sex: Female
  Weight: 61.2356 kg

DRUGS (3)
  1. KINERET [Suspect]
     Indication: RHEUMATOID ARTHRITIS
     Dosage: 100MG DAILY SQ
     Route: 058
     Dates: start: 20080821
  2. KINERET [Suspect]
     Indication: MULTIPLE INJURIES
     Dosage: 100MG DAILY SQ
     Route: 058
     Dates: start: 20080821
  3. KINERET [Suspect]
     Indication: CRUSH INJURY
     Dosage: 100MG DAILY SQ
     Route: 058
     Dates: start: 20080821

REACTIONS (3)
  - ALOPECIA [None]
  - VISION BLURRED [None]
  - CONDITION AGGRAVATED [None]
